FAERS Safety Report 7973290-6 (Version None)
Quarter: 2011Q4

REPORT INFORMATION
  Report Type: 
  Country: None (occurrence: None)
  Receive Date: 20111209
  Receipt Date: 20111124
  Transmission Date: 20120403
  Serious: Yes (Other)
  Sender: FDA-Public Use
  Company Number: 1000025931

PATIENT
  Sex: Male

DRUGS (1)
  1. ROFLUMILAST (ROFLUMILAST) (500 MICROGRAM, TABLETS) [Suspect]
     Dosage: ORAL
     Route: 048
     Dates: start: 20110101, end: 20110101

REACTIONS (3)
  - INSOMNIA [None]
  - GLIOBLASTOMA MULTIFORME [None]
  - HEADACHE [None]
